FAERS Safety Report 16959708 (Version 2)
Quarter: 2020Q1

REPORT INFORMATION
  Report Type: Spontaneous
  Country: PT (occurrence: PT)
  Receive Date: 20191025
  Receipt Date: 20200103
  Transmission Date: 20200409
  Serious: Yes (Other)
  Sender: FDA-Public Use
  Company Number: PT-BEH-2019108250

PATIENT
  Age: 61 Year
  Sex: Female

DRUGS (10)
  1. AMOXILLIN [AMOXICILLIN SODIUM] [Concomitant]
  2. FLURAZEPAM [Concomitant]
     Active Substance: FLURAZEPAM HYDROCHLORIDE
     Route: 048
  3. SERTRALINE [Concomitant]
     Active Substance: SERTRALINE HYDROCHLORIDE
     Route: 048
  4. RISPERIDONE. [Concomitant]
     Active Substance: RISPERIDONE
     Dosage: UNK, BID
     Route: 048
  5. PHYTOMENADIONE [Concomitant]
     Active Substance: PHYTONADIONE
     Dosage: UNK, TID
     Route: 048
  6. CLEMASTIN [Concomitant]
     Active Substance: CLEMASTINE
  7. HYDROCORTISONE. [Concomitant]
     Active Substance: HYDROCORTISONE
  8. HAEMOCOMPLETTAN P [Suspect]
     Active Substance: FIBRINOGEN HUMAN
     Indication: COAGULOPATHY
     Dosage: 2 GRAM, QD
     Route: 042
     Dates: start: 20180629, end: 20180629
  9. AMOXICILLINE/ACIDE CLAVULANIQUE [Concomitant]
     Active Substance: AMOXICILLIN\CLAVULANIC ACID
     Route: 048
  10. LISINOPRIL. [Concomitant]
     Active Substance: LISINOPRIL
     Route: 048

REACTIONS (2)
  - Rash maculo-papular [Recovered/Resolved]
  - Face oedema [Recovered/Resolved]

NARRATIVE: CASE EVENT DATE: 20180629
